FAERS Safety Report 5363235-X (Version None)
Quarter: 2007Q2

REPORT INFORMATION
  Report Type: 
  Country: None (occurrence: None)
  Receive Date: 20070620
  Receipt Date: 20070618
  Transmission Date: 20071010
  Serious: Yes (Hospitalization)
  Sender: FDA-Public Use
  Company Number: BE-BAYER-200710646GDS

PATIENT
  Age: 6 Week
  Sex: Female
  Weight: 3.2 kg

DRUGS (1)
  1. ADALAT [Suspect]
     Indication: HYPERTENSION
     Route: 064
     Dates: start: 20060801, end: 20061101

REACTIONS (3)
  - FLOPPY INFANT [None]
  - OPISTHOTONUS [None]
  - POOR SUCKING REFLEX [None]
